FAERS Safety Report 8890791 (Version 3)
Quarter: 2012Q4

REPORT INFORMATION
  Report Type: Report from Study
  Country: US (occurrence: US)
  Receive Date: 20121107
  Receipt Date: 20121211
  Transmission Date: 20130627
  Serious: Yes (Hospitalization, Other)
  Sender: FDA-Public Use
  Company Number: US-ASTELLAS-2012US007708

PATIENT
  Age: 77 Year
  Sex: Male

DRUGS (1)
  1. ERLOTINIB TABLET [Suspect]
     Indication: PANCREATIC CARCINOMA
     Dosage: 100 mg, UID/QD
     Route: 048
     Dates: start: 20120809

REACTIONS (5)
  - Malignant neoplasm progression [Recovered/Resolved]
  - Anaemia [Recovered/Resolved]
  - Pleural effusion [Unknown]
  - Nausea [Unknown]
  - Rash [Unknown]
